FAERS Safety Report 10687629 (Version 1)
Quarter: 2015Q1

REPORT INFORMATION
  Report Type: Report from Study
  Country: CA (occurrence: CA)
  Receive Date: 20150102
  Receipt Date: 20150102
  Transmission Date: 20150720
  Serious: Yes (Hospitalization)
  Sender: FDA-Public Use
  Company Number: CA-JNJFOC-20141217341

PATIENT
  Sex: Male
  Weight: 72.58 kg

DRUGS (1)
  1. REMICADE [Suspect]
     Active Substance: INFLIXIMAB
     Indication: CROHN^S DISEASE
     Route: 042
     Dates: start: 200611

REACTIONS (4)
  - Surgery [Unknown]
  - Rash erythematous [Unknown]
  - Infection [Unknown]
  - Abdominal infection [Unknown]

NARRATIVE: CASE EVENT DATE: 2013
